FAERS Safety Report 23500801 (Version 1)
Quarter: 2024Q1

REPORT INFORMATION
  Report Type: Spontaneous
  Country: None (occurrence: GB)
  Receive Date: 20240208
  Receipt Date: 20240208
  Transmission Date: 20240410
  Serious: Yes (Other)
  Sender: FDA-Public Use
  Company Number: GB-Harrow Eye-2152855

PATIENT
  Age: 9 Decade
  Sex: Female

DRUGS (5)
  1. VERKAZIA [Suspect]
     Active Substance: CYCLOSPORINE
     Indication: Dry eye
     Route: 047
  2. INDAPAMIDE [Concomitant]
     Active Substance: INDAPAMIDE
  3. DOXYCYCLINE [Concomitant]
     Active Substance: DOXYCYCLINE
  4. ASPIRIN [Concomitant]
     Active Substance: ASPIRIN
  5. BISOPROLOL. [Concomitant]
     Active Substance: BISOPROLOL FUMARATE

REACTIONS (1)
  - Arthropathy [Not Recovered/Not Resolved]
